FAERS Safety Report 7487609-6 (Version None)
Quarter: 2011Q1

REPORT INFORMATION
  Report Type: 
  Country: None (occurrence: None)
  Receive Date: 20110309
  Receipt Date: 20101220
  Transmission Date: 20110831
  Serious: Yes (Other)
  Sender: FDA-Public Use
  Company Number: 2010SP065522

PATIENT
  Age: 67 Year
  Sex: Male

DRUGS (1)
  1. SAPHRIS [Suspect]
     Indication: SCHIZOPHRENIA
     Dosage: SL
     Route: 060

REACTIONS (4)
  - SOMNOLENCE [None]
  - SEDATION [None]
  - DIZZINESS [None]
  - PARKINSONISM [None]
